FAERS Safety Report 7461703-8 (Version None)
Quarter: 2011Q2

REPORT INFORMATION
  Report Type: 
  Country: None (occurrence: None)
  Receive Date: 20110506
  Receipt Date: 20110321
  Transmission Date: 20111010
  Serious: Yes (Hospitalization)
  Sender: FDA-Public Use
  Company Number: US-BAYER-2010-002107

PATIENT
  Age: 34 Year
  Sex: Female
  Weight: 45.351 kg

DRUGS (6)
  1. YAZ [Suspect]
     Indication: PRODUCT USED FOR UNKNOWN INDICATION
     Dosage: UNK
     Dates: start: 20080201
  2. NAPROXEN [Concomitant]
     Dosage: UNK
     Dates: start: 19910101
  3. LORA TAB [Concomitant]
  4. IBUPROFEN [Concomitant]
     Dosage: UNK
     Dates: start: 19910101
  5. DARVOCET [Concomitant]
  6. PERCOCET [Concomitant]

REACTIONS (1)
  - CHOLELITHIASIS [None]
